FAERS Safety Report 25047839 (Version 1)
Quarter: 2025Q1

REPORT INFORMATION
  Report Type: Spontaneous
  Country: US (occurrence: US)
  Receive Date: 20250306
  Receipt Date: 20250306
  Transmission Date: 20250409
  Serious: No
  Sender: NOVARTIS
  Company Number: US-SANDOZ-SDZ2025US013081

PATIENT

DRUGS (7)
  1. MOXIFLOXACIN [Suspect]
     Active Substance: MOXIFLOXACIN
     Indication: Haemoptysis
     Route: 065
     Dates: start: 20230923, end: 20240408
  2. AZITHROMYCIN [Suspect]
     Active Substance: AZITHROMYCIN
     Indication: Haemoptysis
     Route: 065
     Dates: start: 20230811
  3. CLOFAZIMINE [Suspect]
     Active Substance: CLOFAZIMINE
     Indication: Haemoptysis
     Route: 048
     Dates: start: 202410
  4. RIFAMPIN [Suspect]
     Active Substance: RIFAMPIN
     Indication: Haemoptysis
     Route: 065
     Dates: start: 20230811
  5. ETHAMBUTOL [Suspect]
     Active Substance: ETHAMBUTOL HYDROCHLORIDE
     Indication: Haemoptysis
     Route: 065
     Dates: start: 20230811, end: 20230821
  6. AMIKACIN [Suspect]
     Active Substance: AMIKACIN
     Indication: Haemoptysis
     Route: 042
     Dates: start: 20240506
  7. AMIKACIN [Suspect]
     Active Substance: AMIKACIN
     Route: 055
     Dates: start: 20240830

REACTIONS (4)
  - Symptom recurrence [Unknown]
  - Tinnitus [Recovered/Resolved]
  - Rash [Recovering/Resolving]
  - Drug resistance [Recovering/Resolving]
